FAERS Safety Report 23385184 (Version 1)
Quarter: 2024Q1

REPORT INFORMATION
  Report Type: Spontaneous
  Country: CN (occurrence: None)
  Receive Date: 20240110
  Receipt Date: 20240110
  Transmission Date: 20240410
  Serious: Yes (Hospitalization)
  Sender: FDA-Public Use
  Company Number: 2024A005582

PATIENT
  Age: 55 Year
  Sex: Female
  Weight: 50 kg

DRUGS (1)
  1. OSIMERTINIB MESYLATE [Suspect]
     Active Substance: OSIMERTINIB MESYLATE
     Indication: Targeted cancer therapy
     Route: 048
     Dates: start: 20231204, end: 20240104

REACTIONS (1)
  - Granulocyte count decreased [Unknown]

NARRATIVE: CASE EVENT DATE: 20240103
